FAERS Safety Report 6279046-7 (Version None)
Quarter: 2009Q3

REPORT INFORMATION
  Report Type: 
  Country: None (occurrence: None)
  Receive Date: 20090723
  Receipt Date: 20090721
  Transmission Date: 20100115
  Serious: Yes (Other)
  Sender: FDA-Public Use
  Company Number: GB-BAYER-200912416BNE

PATIENT
  Age: 54 Year
  Sex: Female
  Weight: 94 kg

DRUGS (1)
  1. MIRENA [Suspect]
     Indication: DRUG USE FOR UNKNOWN INDICATION
     Route: 015

REACTIONS (1)
  - DEVICE BREAKAGE [None]
